FAERS Safety Report 9832210 (Version 2)
Quarter: 2014Q1

REPORT INFORMATION
  Report Type: Spontaneous
  Country: US (occurrence: US)
  Receive Date: 20140121
  Receipt Date: 20140121
  Transmission Date: 20141002
  Serious: Yes (Other)
  Sender: FDA-Public Use
  Company Number: US-PFIZER INC-2013132999

PATIENT
  Sex: Female

DRUGS (5)
  1. DILANTIN [Suspect]
     Dosage: 2 ML, UNK
     Route: 042
     Dates: start: 20010509
  2. DILANTIN [Suspect]
     Dosage: 100 MG, 3X/DAY
     Route: 048
     Dates: start: 20010514
  3. DILANTIN [Suspect]
     Dosage: 30 MG, DAILY
  4. DILANTIN [Suspect]
     Dosage: 500 MG, DAILY
  5. DILANTIN-125 [Suspect]
     Dosage: UNK, DAILY
     Route: 048

REACTIONS (1)
  - Stevens-Johnson syndrome [Unknown]
